FAERS Safety Report 21151911 (Version 2)
Quarter: 2024Q1

REPORT INFORMATION
  Report Type: Spontaneous
  Country: US (occurrence: US)
  Receive Date: 20220730
  Receipt Date: 20240206
  Transmission Date: 20240409
  Serious: No
  Sender: FDA-Public Use
  Company Number: US-SA-SAC20220720001076

PATIENT
  Age: 71 Year
  Sex: Female
  Weight: 83.9 kg

DRUGS (11)
  1. DUPIXENT [Suspect]
     Active Substance: DUPILUMAB
     Indication: Illness
     Dosage: 300 MG, QOW
     Route: 058
     Dates: start: 202103
  2. DUPIXENT [Suspect]
     Active Substance: DUPILUMAB
     Indication: Dermatitis atopic
  3. ATORVASTATIN CALCIUM [Concomitant]
     Active Substance: ATORVASTATIN CALCIUM
  4. LOSARTAN POTASSIUM [Concomitant]
     Active Substance: LOSARTAN POTASSIUM
  5. HYDROCHLOROTHIAZIDE [Concomitant]
     Active Substance: HYDROCHLOROTHIAZIDE
  6. ZYRTEC [Concomitant]
     Active Substance: CETIRIZINE HYDROCHLORIDE
  7. SALICYLIC ACID [Concomitant]
     Active Substance: SALICYLIC ACID
  8. AVEENO [Concomitant]
     Active Substance: DIMETHICONE\HOMOSALATE\OCTINOXATE\OCTISALATE\TITANIUM DIOXIDE
  9. OPZELURA [Concomitant]
     Active Substance: RUXOLITINIB PHOSPHATE
  10. TERBINAFINE HYDROCHLORIDE [Concomitant]
     Active Substance: TERBINAFINE HYDROCHLORIDE
  11. MODERNA COVID-19 VACCINE [Concomitant]
     Active Substance: ELASOMERAN
     Indication: Immunisation

REACTIONS (9)
  - Cough [Unknown]
  - Sleep disorder due to a general medical condition [Unknown]
  - COVID-19 [Unknown]
  - Skin discolouration [Unknown]
  - Skin irritation [Unknown]
  - Dry skin [Unknown]
  - Pruritus [Unknown]
  - Therapeutic response decreased [Recovering/Resolving]
  - Rash [Recovering/Resolving]
